FAERS Safety Report 6547123-9 (Version None)
Quarter: 2010Q1

REPORT INFORMATION
  Report Type: 
  Country: None (occurrence: None)
  Receive Date: 20100122
  Receipt Date: 20100111
  Transmission Date: 20100710
  Serious: Yes (Other)
  Sender: FDA-Public Use
  Company Number: MX-ELI_LILLY_AND_COMPANY-MX201001002084

PATIENT
  Age: 88 Year
  Sex: Female
  Weight: 43 kg

DRUGS (12)
  1. HUMALOG MIX 75/25 [Suspect]
     Indication: TYPE 2 DIABETES MELLITUS
     Dosage: 11 IU, EACH MORNING
     Route: 058
     Dates: start: 20060101
  2. HUMALOG MIX 75/25 [Suspect]
     Dosage: 7 IU, EACH EVENING
     Route: 058
     Dates: start: 20060101
  3. MICARDIS [Concomitant]
     Indication: HYPERTENSION
     Dosage: 40 MG, DAILY (1/D)
     Route: 065
  4. LIPITOR [Concomitant]
     Indication: CARDIAC DISORDER
     Dosage: 40 MG, DAILY (1/D)
     Route: 065
  5. PLAVIX [Concomitant]
     Indication: CARDIAC DISORDER
     Dosage: 75 MG, DAILY (1/D)
     Route: 065
  6. NORVASC [Concomitant]
     Indication: CARDIAC DISORDER
     Dosage: 5 MG, DAILY (1/D)
     Route: 065
  7. VENALOT - SLOW RELEASE [Concomitant]
     Dosage: UNK, DAILY (1/D)
     Route: 065
  8. OMEPRAZOLE [Concomitant]
     Dosage: 20 MG, DAILY (1/D)
     Route: 065
  9. LYRICA [Concomitant]
     Dosage: 75 MG, DAILY (1/D)
     Route: 065
  10. SERTRALINE HCL [Concomitant]
     Dosage: 50 MG, DAILY (1/D)
     Route: 065
  11. MINODIAB [Concomitant]
     Indication: DIABETES MELLITUS
     Dosage: 5 MG, DAILY (1/D)
     Route: 065
  12. ASPIRIN [Concomitant]
     Indication: CARDIAC DISORDER
     Dosage: 80 MG, DAILY (1/D)
     Route: 065

REACTIONS (2)
  - CATHETERISATION CARDIAC [None]
  - INJECTION SITE MASS [None]
